FAERS Safety Report 15734597 (Version 1)
Quarter: 2018Q4

REPORT INFORMATION
  Report Type: Spontaneous
  Country: US (occurrence: US)
  Receive Date: 20181203
  Receipt Date: 20181203
  Transmission Date: 20190205
  Serious: Yes (Other)
  Sender: FDA-Public Use
  Company Number: None

PATIENT
  Age: 49 Year
  Sex: Male
  Weight: 76.5 kg

DRUGS (2)
  1. FISH OIL [Concomitant]
     Active Substance: FISH OIL
  2. IC VALSARTAN 80MG TABLET [Suspect]
     Active Substance: VALSARTAN
     Indication: HYPERTENSION
     Dosage: ?          QUANTITY:30 DF DOSAGE FORM;?
     Route: 048
     Dates: start: 20180911, end: 20181203

REACTIONS (2)
  - Hypoaesthesia [None]
  - Recalled product [None]

NARRATIVE: CASE EVENT DATE: 20180915
